FAERS Safety Report 5602638-2 (Version None)
Quarter: 2008Q1

REPORT INFORMATION
  Report Type: 
  Country: None (occurrence: None)
  Receive Date: 20080125
  Receipt Date: 20080115
  Transmission Date: 20080703
  Serious: Yes (Other)
  Sender: FDA-Public Use
  Company Number: US-ASTRAZENECA-2006UW07911

PATIENT
  Age: 42 Year
  Sex: Female
  Weight: 136.4 kg

DRUGS (8)
  1. SEROQUEL [Suspect]
     Indication: DEPRESSION
     Route: 048
     Dates: start: 20010417, end: 20071129
  2. SEROQUEL [Suspect]
     Indication: SLEEP DISORDER
     Route: 048
     Dates: start: 20010417, end: 20071129
  3. SEROQUEL [Suspect]
     Indication: ANXIETY
     Route: 048
     Dates: start: 20010417, end: 20071129
  4. ABILIFY [Concomitant]
     Dates: start: 20060101
  5. ZYPREXA [Concomitant]
     Dates: start: 20021118, end: 20050806
  6. BUSPAR [Concomitant]
  7. FLUOXETINE [Concomitant]
  8. TRAZODONE HCL [Concomitant]

REACTIONS (10)
  - BLOOD CHOLESTEROL INCREASED [None]
  - BLOOD TRIGLYCERIDES INCREASED [None]
  - BREAST OPERATION [None]
  - CARDIAC DISORDER [None]
  - CHOLECYSTECTOMY [None]
  - CONVULSION [None]
  - CORONARY ARTERY DISEASE [None]
  - DIABETES MELLITUS [None]
  - MIGRAINE [None]
  - OBESITY [None]
